FAERS Safety Report 4402268-4 (Version None)
Quarter: 2004Q3

REPORT INFORMATION
  Report Type: 
  Country: None (occurrence: None)
  Receive Date: 20040720
  Receipt Date: 20040628
  Transmission Date: 20050211
  Serious: Yes (Other)
  Sender: FDA-Public Use
  Company Number: US-GLAXOSMITHKLINE-A0516247A

PATIENT
  Age: 51 Year
  Sex: Male
  Weight: 70 kg

DRUGS (5)
  1. TRIZIVIR [Suspect]
     Indication: HIV INFECTION
     Dosage: 1TAB TWICE PER DAY
     Route: 048
     Dates: start: 20040528, end: 20040628
  2. SUSTIVA [Concomitant]
     Indication: HIV INFECTION
     Route: 048
     Dates: start: 20040528, end: 20040628
  3. HYDROXYZINE [Concomitant]
     Route: 048
  4. TYLENOL [Concomitant]
     Route: 048
  5. RECOMBINATE [Concomitant]
     Route: 042

REACTIONS (7)
  - BLOOD PRESSURE INCREASED [None]
  - HYPERSENSITIVITY [None]
  - MALAISE [None]
  - PYREXIA [None]
  - RASH [None]
  - TACHYCARDIA [None]
  - URTICARIA [None]
